FAERS Safety Report 5080574-0 (Version None)
Quarter: 2006Q3

REPORT INFORMATION
  Report Type: 
  Country: None (occurrence: None)
  Receive Date: 20060815
  Receipt Date: 20060505
  Transmission Date: 20061208
  Serious: Yes (Other)
  Sender: FDA-Public Use
  Company Number: M-06-0348

PATIENT
  Age: 76 Year
  Sex: Female
  Weight: 62.7 kg

DRUGS (6)
  1. LANOXIN [Suspect]
     Indication: ATRIAL FIBRILLATION
     Dosage: .125MG PER DAY
     Route: 048
     Dates: start: 20060401
  2. PACERONE [Suspect]
     Indication: ATRIAL FIBRILLATION
     Route: 048
     Dates: start: 20050801, end: 20060401
  3. TENORMIN [Suspect]
     Indication: ATRIAL FIBRILLATION
     Dosage: 25MG PER DAY
     Route: 048
     Dates: start: 20060401
  4. BENICAR [Concomitant]
  5. NORVASC [Concomitant]
  6. COUMADIN [Concomitant]
     Dates: start: 20041201

REACTIONS (5)
  - ASTHENIA [None]
  - COUGH [None]
  - DYSPNOEA [None]
  - OXYGEN SATURATION DECREASED [None]
  - PULMONARY FIBROSIS [None]
